FAERS Safety Report 7371002-0 (Version None)
Quarter: 2011Q1

REPORT INFORMATION
  Report Type: 
  Country: None (occurrence: None)
  Receive Date: 20110324
  Receipt Date: 20110317
  Transmission Date: 20110831
  Serious: Yes (Other)
  Sender: FDA-Public Use
  Company Number: DE-SHIRE-SPV1-2011-00446

PATIENT
  Sex: Female

DRUGS (1)
  1. EQUASYM RETARD [Suspect]
     Indication: PRODUCT USED FOR UNKNOWN INDICATION
     Dosage: 240 MG, UNKNOWN
     Route: 048
     Dates: start: 20110317

REACTIONS (4)
  - INTENTIONAL OVERDOSE [None]
  - DRUG ABUSE [None]
  - SOPOR [None]
  - TACHYCARDIA [None]
